FAERS Safety Report 14815836 (Version 1)
Quarter: 2018Q2

REPORT INFORMATION
  Report Type: Spontaneous
  Country: US (occurrence: US)
  Receive Date: 20180426
  Receipt Date: 20180426
  Transmission Date: 20180711
  Serious: Yes (Disabling)
  Sender: FDA-Public Use
  Company Number: US-PFIZER INC-2018166912

PATIENT
  Age: 59 Year
  Sex: Female

DRUGS (2)
  1. FASLODEX [Suspect]
     Active Substance: FULVESTRANT
     Indication: BREAST CANCER FEMALE
     Dosage: UNK
     Dates: start: 201711
  2. IBRANCE [Suspect]
     Active Substance: PALBOCICLIB
     Indication: BREAST CANCER FEMALE
     Dosage: 100 MG, UNK

REACTIONS (4)
  - Speech disorder [Recovering/Resolving]
  - Coordination abnormal [Recovering/Resolving]
  - Tremor [Recovering/Resolving]
  - Muscle fatigue [Recovering/Resolving]

NARRATIVE: CASE EVENT DATE: 201712
